FAERS Safety Report 8238046-8 (Version None)
Quarter: 2012Q1

REPORT INFORMATION
  Report Type: 
  Country: None (occurrence: None)
  Receive Date: 20120327
  Receipt Date: 20120320
  Transmission Date: 20120608
  Serious: Yes (Hospitalization)
  Sender: FDA-Public Use
  Company Number: US-GLAXOSMITHKLINE-A0957989A

PATIENT
  Age: 77 Year
  Sex: Female

DRUGS (4)
  1. OXYGEN [Concomitant]
  2. LAMICTAL [Concomitant]
  3. ANTIDEPRESSANT [Concomitant]
  4. ADVAIR DISKUS 100/50 [Suspect]
     Indication: CHRONIC OBSTRUCTIVE PULMONARY DISEASE
     Dosage: 1PUFF TWICE PER DAY
     Route: 055
     Dates: start: 20101201

REACTIONS (2)
  - THROAT IRRITATION [None]
  - DYSPNOEA [None]
